FAERS Safety Report 7023110-1 (Version None)
Quarter: 2010Q3

REPORT INFORMATION
  Report Type: 
  Country: None (occurrence: None)
  Receive Date: 20100930
  Receipt Date: 20100922
  Transmission Date: 20110219
  Serious: Yes (Other)
  Sender: FDA-Public Use
  Company Number: PHHY2010JP56541

PATIENT
  Age: 55 Year
  Sex: Male

DRUGS (6)
  1. NEORAL [Suspect]
     Indication: PSORIASIS
     Dosage: 200 MG, QD
     Route: 048
  2. NEORAL [Suspect]
     Dosage: 100 MG, QD
     Route: 048
  3. PREDNISOLONE [Suspect]
     Indication: PSORIASIS
     Route: 048
  4. TACROLIMUS [Concomitant]
  5. ITRACONAZOLE [Concomitant]
     Indication: ORAL CANDIDIASIS
     Route: 048
  6. METHOTREXATE [Concomitant]
     Dosage: 2MG
     Route: 048

REACTIONS (7)
  - BLOOD CREATININE INCREASED [None]
  - DYSSTASIA [None]
  - IMMUNOSUPPRESSANT DRUG LEVEL INCREASED [None]
  - INTRAOCULAR PRESSURE INCREASED [None]
  - JOINT SWELLING [None]
  - PAIN [None]
  - SKIN DISORDER [None]
